FAERS Safety Report 8407063-7 (Version None)
Quarter: 2012Q2

REPORT INFORMATION
  Report Type: 
  Country: None (occurrence: None)
  Receive Date: 20120604
  Receipt Date: 20120531
  Transmission Date: 20120825
  Serious: Yes (Death)
  Sender: FDA-Public Use
  Company Number: PHHY2012BR047269

PATIENT
  Sex: Female

DRUGS (4)
  1. VASOGARD [Concomitant]
     Indication: ANTICOAGULANT THERAPY
     Dosage: 100 MG, ONE TABLET A DAY
  2. DIOVAN HCT [Suspect]
     Indication: CARDIAC DISORDER
     Dosage: 1 DF (80/12.5 MG), A DAY
  3. ASPIRIN PREVENT [Concomitant]
     Dosage: 100 MG, UNK
  4. CRESTOR [Concomitant]
     Indication: BLOOD CHOLESTEROL INCREASED
     Dosage: 10 MG, UNK

REACTIONS (1)
  - INFARCTION [None]
